FAERS Safety Report 5579876-0 (Version None)
Quarter: 2008Q1

REPORT INFORMATION
  Report Type: 
  Country: None (occurrence: None)
  Receive Date: 20080102
  Receipt Date: 20071225
  Transmission Date: 20080703
  Serious: Yes (Hospitalization)
  Sender: FDA-Public Use
  Company Number: JP-MERCK-0712USA02705

PATIENT

DRUGS (4)
  1. PRIMAXIN [Suspect]
     Indication: PNEUMONIA
     Route: 041
     Dates: start: 20071206, end: 20071207
  2. UNASYN (AMPICILLIN SODIUM (+) SULBACTAM SODIUM) [Concomitant]
     Indication: PNEUMONIA
     Route: 041
     Dates: start: 20071203, end: 20071206
  3. [THERAPY UNSPECIFIED] [Concomitant]
     Indication: ENTERAL NUTRITION
     Route: 041
     Dates: start: 20071203, end: 20071206
  4. NEOLAMIN 3B INTRAVENOUS [Concomitant]
     Indication: ENTERAL NUTRITION
     Route: 041
     Dates: start: 20071203, end: 20071206

REACTIONS (1)
  - LIVER DISORDER [None]
